FAERS Safety Report 23085399 (Version 2)
Quarter: 2024Q1

REPORT INFORMATION
  Report Type: Report from Study
  Country: US (occurrence: US)
  Receive Date: 20231019
  Receipt Date: 20240307
  Transmission Date: 20240410
  Serious: Yes (Other)
  Sender: FDA-Public Use
  Company Number: US-ABBVIE-5452613

PATIENT
  Sex: Female

DRUGS (1)
  1. HUMIRA [Suspect]
     Active Substance: ADALIMUMAB
     Indication: Rheumatoid arthritis
     Dosage: CITRATE FREE FORM STRENGTH: 40 MILLIGRAM
     Route: 058
     Dates: start: 20230209

REACTIONS (9)
  - Systemic lupus erythematosus [Not Recovered/Not Resolved]
  - Fall [Recovering/Resolving]
  - Hypertension [Recovered/Resolved]
  - Eye disorder [Not Recovered/Not Resolved]
  - Hypertension [Recovered/Resolved with Sequelae]
  - Skin abrasion [Unknown]
  - Contusion [Recovering/Resolving]
  - Balance disorder [Recovering/Resolving]
  - Gastrointestinal disorder [Unknown]

NARRATIVE: CASE EVENT DATE: 20230101
